FAERS Safety Report 21269559 (Version 1)
Quarter: 2022Q3

REPORT INFORMATION
  Report Type: Spontaneous
  Country: US (occurrence: US)
  Receive Date: 20220830
  Receipt Date: 20220830
  Transmission Date: 20221026
  Serious: Yes (Hospitalization)
  Sender: FDA-Public Use
  Company Number: US-Accord-275618

PATIENT
  Age: 20 Year
  Sex: Female

DRUGS (2)
  1. NALTREXONE [Suspect]
     Active Substance: NALTREXONE
     Indication: Alcoholism
     Dosage: MOUTH DAILY, ON 12-MAY-2021: DRUG RESTARTED. STOPPED ON 17-MAY-2021.
     Route: 048
     Dates: start: 20210212, end: 20210216
  2. LITHIUM [Concomitant]
     Active Substance: LITHIUM
     Dosage: DOSE INCREASED TO 1200 MG PER DAY
     Dates: start: 202011, end: 20210219

REACTIONS (1)
  - Eosinophilic pustular folliculitis [Recovered/Resolved]

NARRATIVE: CASE EVENT DATE: 20210212
